FAERS Safety Report 22188553 (Version 1)
Quarter: 2023Q2

REPORT INFORMATION
  Report Type: Spontaneous
  Country: US (occurrence: US)
  Receive Date: 20230409
  Receipt Date: 20230409
  Transmission Date: 20230722
  Serious: Yes (Other)
  Sender: FDA-Public Use
  Company Number: US-AUROBINDO-AUR-APL-2023-015125

PATIENT
  Age: 42 Year
  Sex: Male

DRUGS (12)
  1. HYDROXYCHLOROQUINE [Suspect]
     Active Substance: HYDROXYCHLOROQUINE
     Indication: T-cell lymphoma
     Dosage: 200 MILLIGRAM, TWO TIMES A DAY
     Route: 065
  2. HYDROXYCHLOROQUINE [Suspect]
     Active Substance: HYDROXYCHLOROQUINE
     Indication: Panniculitis
  3. METHOTREXATE [Suspect]
     Active Substance: METHOTREXATE
     Indication: T-cell lymphoma
     Dosage: 7.5 MILLIGRAM, EVERY WEEK
     Route: 065
  4. METHOTREXATE [Suspect]
     Active Substance: METHOTREXATE
     Indication: Panniculitis
     Dosage: 25 MILLIGRAM, EVERY WEEK
     Route: 065
  5. PREDNISONE [Suspect]
     Active Substance: PREDNISONE
     Indication: T-cell lymphoma
     Dosage: 40 MILLIGRAM, ONCE A DAY
     Route: 065
  6. PREDNISONE [Suspect]
     Active Substance: PREDNISONE
     Indication: Panniculitis
     Dosage: 10 MILLIGRAM, EVERY WEEK
     Route: 065
  7. CYCLOSPORINE [Suspect]
     Active Substance: CYCLOSPORINE
     Indication: T-cell lymphoma
     Dosage: 100 MILLIGRAM, TWO TIMES A DAY
     Route: 065
  8. CYCLOSPORINE [Suspect]
     Active Substance: CYCLOSPORINE
     Dosage: 150 MILLIGRAM, TWO TIMES A DAY
     Route: 065
  9. TRIAMCINOLONE [Suspect]
     Active Substance: TRIAMCINOLONE
     Indication: T-cell lymphoma
     Dosage: UNK
     Route: 026
  10. TRIAMCINOLONE [Suspect]
     Active Substance: TRIAMCINOLONE
     Indication: Panniculitis
  11. ROMIDEPSIN [Concomitant]
     Active Substance: ROMIDEPSIN
     Indication: T-cell lymphoma
     Dosage: 14 MILLIGRAM, EVERY WEEK
     Route: 065
  12. ROMIDEPSIN [Concomitant]
     Active Substance: ROMIDEPSIN
     Indication: Panniculitis

REACTIONS (1)
  - Drug ineffective [Unknown]
